FAERS Safety Report 20966595 (Version 1)
Quarter: 2022Q2

REPORT INFORMATION
  Report Type: Spontaneous
  Country: US (occurrence: None)
  Receive Date: 20220615
  Receipt Date: 20220615
  Transmission Date: 20220721
  Serious: Yes (Death)
  Sender: FDA-Public Use
  Company Number: None

PATIENT
  Sex: 0

DRUGS (1)
  1. SILVER SULFADIAZENE [Suspect]
     Active Substance: SILVER SULFADIAZINE

REACTIONS (1)
  - Death [None]
